FAERS Safety Report 7077068 (Version 1)
Quarter: 2020Q3

REPORT INFORMATION
  Report Type: Report from Study
  Country: US (occurrence: US)
  Receive Date: 20090810
  Receipt Date: 20090810
  Transmission Date: 20201105
  Serious: Yes (Hospitalization)
  Sender: FDA-Public Use
  Company Number: US-ROCHE-586151

PATIENT
  Age: 71 Year
  Sex: Female

DRUGS (10)
  1. IBANDRONIC ACID. [Suspect]
     Active Substance: IBANDRONIC ACID
     Indication: OSTEOPOROSIS
     Dosage: OTHER INDICATION: OSTEOPENIA
     Route: 048
     Dates: start: 200803
  2. IBANDRONIC ACID. [Suspect]
     Active Substance: IBANDRONIC ACID
     Route: 048
     Dates: start: 20080701, end: 200906
  3. VITAMIN [Concomitant]
  4. VITAMINE D [Concomitant]
  5. BISOPROLOL [Concomitant]
     Active Substance: BISOPROLOL
  6. CALCIUM [Concomitant]
     Active Substance: CALCIUM
  7. IBANDRONIC ACID. [Suspect]
     Active Substance: IBANDRONIC ACID
     Route: 065
     Dates: end: 200801
  8. TRIAMTERENE. [Concomitant]
     Active Substance: TRIAMTERENE
  9. CHONDROITIN SULFATE (BOVINE)\GLUCOSAMINE SULFATE [Concomitant]
     Active Substance: CHONDROITIN SULFATE (BOVINE)\GLUCOSAMINE SULFATE
  10. 1 CONCOMITANT DRUG [Concomitant]
     Dosage: DRUG: B/P MEDICATION

REACTIONS (3)
  - Chest discomfort [Recovering/Resolving]
  - Pain [Not Recovered/Not Resolved]
  - Lung neoplasm [Unknown]

NARRATIVE: CASE EVENT DATE: 20080301
